FAERS Safety Report 15334066 (Version 1)
Quarter: 2018Q3

REPORT INFORMATION
  Report Type: Spontaneous
  Country: US (occurrence: US)
  Receive Date: 20180826
  Receipt Date: 20180826
  Transmission Date: 20181010
  Serious: Yes (Disabling)
  Sender: FDA-Public Use
  Company Number: None

PATIENT
  Age: 44 Year
  Sex: Female
  Weight: 60.75 kg

DRUGS (1)
  1. NEOSPORIN [Suspect]
     Active Substance: BACITRACIN ZINC\NEOMYCIN SULFATE\POLYMYXIN B SULFATE
     Indication: FACE INJURY
     Dates: start: 20180804, end: 20180806

REACTIONS (4)
  - Application site reaction [None]
  - Application site pruritus [None]
  - Application site erythema [None]
  - Application site inflammation [None]

NARRATIVE: CASE EVENT DATE: 20180805
